FAERS Safety Report 7513637-8 (Version None)
Quarter: 2011Q2

REPORT INFORMATION
  Report Type: 
  Country: None (occurrence: None)
  Receive Date: 20110531
  Receipt Date: 20110509
  Transmission Date: 20111010
  Serious: Yes (Hospitalization, Other)
  Sender: FDA-Public Use
  Company Number: US-BAYER-201042022NA

PATIENT
  Age: 22 Year
  Sex: Female
  Weight: 131.52 kg

DRUGS (26)
  1. HYDROXYZINE [Concomitant]
     Indication: MULTIPLE ALLERGIES
     Dosage: UNK
     Dates: start: 20081003
  2. YAZ [Suspect]
     Indication: CONTRACEPTION
     Dosage: UNK
     Route: 048
     Dates: start: 20071101, end: 20081017
  3. FLUCONAZOLE [Concomitant]
     Dosage: UNK
     Dates: start: 20081001
  4. TORADOL [Concomitant]
     Dosage: UNK
     Route: 040
     Dates: start: 20081101
  5. HYPNOTICS AND SEDATIVES [Concomitant]
     Dosage: UNK
  6. METRONIDAZOLE [Concomitant]
     Dosage: UNK
     Dates: start: 20071201
  7. DIFLUCAN [Concomitant]
     Dosage: 100 MG, QD
     Dates: start: 20080917
  8. ALBUTEROL SULFATE AUTOHALER [Concomitant]
     Indication: ASTHMA
     Dosage: UNK
     Dates: start: 20081026
  9. PROMETHAZINE [Concomitant]
     Indication: NAUSEA
     Dosage: UNK
     Dates: start: 20081017
  10. ORTHO TRI-CYCLEN [Concomitant]
     Dosage: UNK
     Dates: start: 20070626, end: 20071002
  11. DEPO-PROVERA [Concomitant]
     Indication: CONTRACEPTION
  12. METRONIDAZOLE [Concomitant]
     Dosage: UNK
     Dates: start: 20080801
  13. FLUCONAZOLE [Concomitant]
     Dosage: UNK
     Dates: start: 20050701
  14. CEFUROXIME [Concomitant]
     Dosage: UNK
     Dates: start: 20081001
  15. LEVOFLOXACIN [Concomitant]
     Dosage: UNK
     Dates: start: 20081001
  16. TOPAMAX [Concomitant]
     Indication: MIGRAINE
     Dosage: UNK
     Dates: start: 20081001
  17. QUININE SULFATE [QUININE SULFATE] [Concomitant]
     Indication: MUSCLE SPASMS
     Dosage: UNK
     Dates: start: 20081015
  18. METRONIDAZOLE [Concomitant]
     Dosage: UNK
     Dates: start: 20080701
  19. FLUCONAZOLE [Concomitant]
     Dosage: UNK
     Dates: start: 20071201
  20. HYDROCHLOROTHIAZIDE [Concomitant]
     Indication: HYPERTENSION
     Dosage: UNK
     Dates: start: 20070401, end: 20090101
  21. ORTHO TRI-CYCLEN [Concomitant]
     Indication: CONTRACEPTION
     Dosage: UNK
     Dates: start: 20061204, end: 20070401
  22. YAZ [Suspect]
     Dosage: UNK
     Route: 048
     Dates: start: 20050318, end: 20081010
  23. TYLENOL (CAPLET) [Concomitant]
  24. MULTI-VITAMINS [Concomitant]
  25. METRONIDAZOLE [Concomitant]
     Dosage: UNK
  26. PREDNISONE [Concomitant]
     Indication: UPPER RESPIRATORY TRACT INFECTION
     Dosage: UNK
     Dates: start: 20081010

REACTIONS (10)
  - PULMONARY EMBOLISM [None]
  - DYSPNOEA [None]
  - PANIC ATTACK [None]
  - DEEP VEIN THROMBOSIS [None]
  - PAIN IN EXTREMITY [None]
  - FATIGUE [None]
  - WEIGHT INCREASED [None]
  - PNEUMONIA [None]
  - NAUSEA [None]
  - OEDEMA PERIPHERAL [None]
